FAERS Safety Report 8541440-9 (Version None)
Quarter: 2012Q3

REPORT INFORMATION
  Report Type: 
  Country: None (occurrence: None)
  Receive Date: 20120726
  Receipt Date: 20120718
  Transmission Date: 20120928
  Serious: Yes (Other)
  Sender: FDA-Public Use
  Company Number: US-ALLERGAN-1209997US

PATIENT
  Age: 52 Year
  Sex: Female

DRUGS (5)
  1. PREDNISOLONE ACETATE [Suspect]
     Indication: PRODUCT USED FOR UNKNOWN INDICATION
     Dosage: Q3HR IN WEEKLY TAPERING DOSESUNK UNK, Q3HR
     Route: 047
  2. KONTUR LENS (KONTUR KONTACT LENS, RICHMOND, CA) [Suspect]
     Indication: PRODUCT USED FOR UNKNOWN INDICATION
     Dosage: UNK, UNKNOWN
     Route: 047
  3. GATIFLOXACIN [Concomitant]
     Dosage: UNK, BID
     Route: 047
  4. PREDNISOLONE ACETATE [Suspect]
     Dosage: UNK UNK, QD
     Route: 047
  5. GATIFLOXACIN [Concomitant]
     Indication: PRODUCT USED FOR UNKNOWN INDICATION
     Dosage: UNK UNK, Q6HR
     Route: 047

REACTIONS (2)
  - KERATITIS FUNGAL [None]
  - ENDOPHTHALMITIS [None]
